FAERS Safety Report 22387362 (Version 5)
Quarter: 2024Q1

REPORT INFORMATION
  Report Type: Spontaneous
  Country: US (occurrence: US)
  Receive Date: 20230531
  Receipt Date: 20240119
  Transmission Date: 20240410
  Serious: Yes (Other)
  Sender: FDA-Public Use
  Company Number: US-BRISTOL-MYERS SQUIBB COMPANY-2023-074690

PATIENT
  Age: 59 Year
  Sex: Male

DRUGS (1)
  1. REVLIMID [Suspect]
     Active Substance: LENALIDOMIDE
     Indication: Plasma cell myeloma
     Dosage: FREQ: TAKE 1 CAPSULE BY MOUTH EVERY DAY FOR 21 DAYS THEN 7 DAYS OFF
     Route: 048
     Dates: start: 20201103

REACTIONS (3)
  - Neuropathy peripheral [Not Recovered/Not Resolved]
  - Protein urine present [Unknown]
  - Product dose omission issue [Unknown]
